FAERS Safety Report 17076944 (Version 1)
Quarter: 2019Q4

REPORT INFORMATION
  Report Type: Report from Study
  Country: CA (occurrence: CA)
  Receive Date: 20191126
  Receipt Date: 20191126
  Transmission Date: 20200122
  Serious: Yes (Hospitalization)
  Sender: FDA-Public Use
  Company Number: CA-ASTRAZENECA-2019SF50327

PATIENT
  Sex: Male

DRUGS (14)
  1. FASENRA [Suspect]
     Active Substance: BENRALIZUMAB
     Indication: ASTHMA
     Dosage: 30.0MG UNKNOWN
     Route: 058
     Dates: start: 20190208
  2. VENTOLIN [Concomitant]
     Active Substance: ALBUTEROL SULFATE
  3. INSULIN [Concomitant]
     Active Substance: INSULIN NOS
  4. ZENHALE [Concomitant]
     Active Substance: FORMOTEROL FUMARATE\MOMETASONE FUROATE
  5. SINGULAIR [Concomitant]
     Active Substance: MONTELUKAST SODIUM
  6. LIPITOR [Concomitant]
     Active Substance: ATORVASTATIN CALCIUM
  7. RAMIPRIL. [Concomitant]
     Active Substance: RAMIPRIL
  8. NUCALA [Concomitant]
     Active Substance: MEPOLIZUMAB
  9. NASONEX [Concomitant]
     Active Substance: MOMETASONE FUROATE
  10. SALBUTAMOL [Concomitant]
     Active Substance: ALBUTEROL
  11. COMBIVENT [Concomitant]
     Active Substance: ALBUTEROL SULFATE\IPRATROPIUM BROMIDE
  12. SPIRIVA [Concomitant]
     Active Substance: TIOTROPIUM BROMIDE MONOHYDRATE
  13. PULMICORT TURBUHALER [Concomitant]
     Active Substance: BUDESONIDE
  14. SERC [Concomitant]

REACTIONS (5)
  - Back pain [Unknown]
  - Drug ineffective [Unknown]
  - Oedema peripheral [Unknown]
  - Asthma [Unknown]
  - Pleural infection [Recovering/Resolving]
